FAERS Safety Report 14131539 (Version 5)
Quarter: 2018Q1

REPORT INFORMATION
  Report Type: Report from Study
  Country: US (occurrence: US)
  Receive Date: 20171026
  Receipt Date: 20180214
  Transmission Date: 20180508
  Serious: Yes (Death, Hospitalization, Other)
  Sender: FDA-Public Use
  Company Number: US-EXELIXIS-XL18417010925

PATIENT
  Age: 39 Year
  Sex: Male
  Weight: 57.2 kg

DRUGS (6)
  1. NIVOLUMAB [Suspect]
     Active Substance: NIVOLUMAB
     Dosage: 157 MG
     Route: 042
     Dates: start: 20171109, end: 20171109
  2. IPILIMUMAB [Suspect]
     Active Substance: IPILIMUMAB
     Indication: BLADDER TRANSITIONAL CELL CARCINOMA METASTATIC
     Dosage: 1 MG/KG, Q4WEEKS
     Route: 042
     Dates: start: 20170918
  3. IPILIMUMAB [Suspect]
     Active Substance: IPILIMUMAB
     Dosage: 52.4 MG
     Route: 042
     Dates: start: 20171109, end: 20171109
  4. XL184 [Suspect]
     Active Substance: CABOZANTINIB
     Indication: BLADDER TRANSITIONAL CELL CARCINOMA METASTATIC
     Dosage: 40 MG, QD
     Route: 048
     Dates: start: 20170918, end: 20171002
  5. NIVOLUMAB [Suspect]
     Active Substance: NIVOLUMAB
     Indication: BLADDER TRANSITIONAL CELL CARCINOMA METASTATIC
     Dosage: 347 MG, Q2WEEKS
     Route: 042
     Dates: start: 20170918, end: 20171002
  6. XL184 [Suspect]
     Active Substance: CABOZANTINIB
     Dosage: 40 MG, QD
     Route: 048
     Dates: start: 20171016, end: 20171103

REACTIONS (9)
  - Bone pain [Recovered/Resolved]
  - Constipation [Unknown]
  - Malignant neoplasm progression [Fatal]
  - Fatigue [Unknown]
  - Lipase increased [Not Recovered/Not Resolved]
  - Acute kidney injury [Unknown]
  - Decreased appetite [Recovered/Resolved]
  - Nausea [Unknown]
  - Abdominal pain [Unknown]

NARRATIVE: CASE EVENT DATE: 20171002
